FAERS Safety Report 9895846 (Version 2)
Quarter: 2014Q1

REPORT INFORMATION
  Report Type: Spontaneous
  Country: US (occurrence: US)
  Receive Date: 20140213
  Receipt Date: 20140213
  Transmission Date: 20141002
  Serious: No
  Sender: FDA-Public Use
  Company Number: US-BRISTOL-MYERS SQUIBB COMPANY-17248352

PATIENT
  Age: 59 Year
  Sex: Female

DRUGS (1)
  1. ORENCIA [Suspect]
     Dosage: DATE OF LAST INFUSION: 26DEC2012?ALSO TAKEN IN 750MG DOSE FORM UNK DATE.
     Route: 042

REACTIONS (5)
  - Infection [Unknown]
  - Abscess [Unknown]
  - Cough [Unknown]
  - Headache [Unknown]
  - Pain [Unknown]
